FAERS Safety Report 8138865-2 (Version None)
Quarter: 2012Q1

REPORT INFORMATION
  Report Type: 
  Country: None (occurrence: None)
  Receive Date: 20120215
  Receipt Date: 20120208
  Transmission Date: 20120608
  Serious: Yes (Life-Threatening)
  Sender: FDA-Public Use
  Company Number: JP-TEVA-2011004688

PATIENT
  Sex: Female
  Weight: 47.8 kg

DRUGS (23)
  1. MAGNESIUM OXIDE [Concomitant]
  2. BENDAMUSTINE [Suspect]
     Route: 042
     Dates: start: 20110921, end: 20110922
  3. BENDAMUSTINE [Suspect]
     Route: 042
     Dates: start: 20110823, end: 20110824
  4. RITUXIMAB [Suspect]
     Route: 042
     Dates: start: 20110920, end: 20110920
  5. REBAMIPIDE [Concomitant]
  6. BENDAMUSTINE [Suspect]
     Route: 042
     Dates: start: 20110706, end: 20110707
  7. RITUXIMAB [Suspect]
     Route: 042
     Dates: start: 20110705, end: 20110705
  8. LOXOPROFEN SODIUM [Concomitant]
     Dates: start: 20110225, end: 20110922
  9. FAMOTIDINE [Concomitant]
  10. ETIZOLAM [Concomitant]
  11. RILMAZAFONE HYDROCHLORIDE [Concomitant]
     Dates: start: 20110323
  12. POVIDONE IODINE [Concomitant]
  13. SENNOSIDE [Concomitant]
     Dates: start: 20110707, end: 20110709
  14. BENDAMUSTINE [Suspect]
     Indication: B-CELL LYMPHOMA
     Route: 042
     Dates: start: 20110203, end: 20110204
  15. BENDAMUSTINE [Suspect]
     Route: 042
     Dates: start: 20110228, end: 20110301
  16. RITUXIMAB [Suspect]
     Indication: B-CELL LYMPHOMA
     Route: 042
     Dates: end: 20110225
  17. GRANISETRON [Concomitant]
     Dates: start: 20110203, end: 20110922
  18. RITUXIMAB [Suspect]
     Route: 042
     Dates: start: 20110822, end: 20110822
  19. ACYCLOVIR [Concomitant]
  20. ITRACONAZOLE [Concomitant]
     Dates: end: 20110608
  21. URSODIOL [Concomitant]
     Dates: start: 20110622
  22. CLEMASTINE FUMARATE [Concomitant]
     Dates: start: 20110225, end: 20110922
  23. SULFAMETHOXAZOLE AND TRIMETHOPRIM [Concomitant]

REACTIONS (5)
  - PANCYTOPENIA [None]
  - PLATELET COUNT DECREASED [None]
  - WHITE BLOOD CELL COUNT DECREASED [None]
  - HYPOGAMMAGLOBULINAEMIA [None]
  - LYMPHOCYTE COUNT DECREASED [None]
